FAERS Safety Report 21165823 (Version 2)
Quarter: 2022Q4

REPORT INFORMATION
  Report Type: Spontaneous
  Country: SE (occurrence: SE)
  Receive Date: 20220803
  Receipt Date: 20221021
  Transmission Date: 20230113
  Serious: Yes (Other)
  Sender: FDA-Public Use
  Company Number: SE-NOVARTISPH-NVSC2022SE174770

PATIENT
  Age: 74 Year
  Sex: Male

DRUGS (1)
  1. VOTRIENT [Suspect]
     Active Substance: PAZOPANIB HYDROCHLORIDE
     Indication: Dedifferentiated liposarcoma
     Dosage: UNK
     Route: 065
     Dates: end: 20220721

REACTIONS (2)
  - Atrial fibrillation [Unknown]
  - Cardiac failure [Unknown]

NARRATIVE: CASE EVENT DATE: 20220419
